FAERS Safety Report 8881130 (Version 1)
Quarter: 2012Q4

REPORT INFORMATION
  Report Type: 
  Country: US (occurrence: US)
  Receive Date: 20121031
  Receipt Date: 20121031
  Transmission Date: 20130627
  Serious: Yes (Other)
  Sender: FDA-Public Use
  Company Number: US-BAYER-2012-111600

PATIENT
  Sex: Female

DRUGS (1)
  1. MIRENA [Suspect]
     Indication: CONTRACEPTION
     Dosage: 20 mcg/24hr, CONT
     Route: 015
     Dates: start: 201005

REACTIONS (6)
  - Urinary tract infection [Not Recovered/Not Resolved]
  - Coital bleeding [Not Recovered/Not Resolved]
  - Weight increased [Recovering/Resolving]
  - Menstruation irregular [Not Recovered/Not Resolved]
  - Menorrhagia [Not Recovered/Not Resolved]
  - Hypomenorrhoea [Not Recovered/Not Resolved]
